FAERS Safety Report 14783602 (Version 1)
Quarter: 2018Q2

REPORT INFORMATION
  Report Type: Spontaneous
  Country: JP (occurrence: JP)
  Receive Date: 20180420
  Receipt Date: 20180420
  Transmission Date: 20180711
  Serious: Yes (Life-Threatening, Hospitalization)
  Sender: FDA-Public Use
  Company Number: JP-LUNDBECK-DKLU2047444

PATIENT
  Age: 12 Month
  Sex: Male

DRUGS (15)
  1. SABRIL [Suspect]
     Active Substance: VIGABATRIN
     Route: 048
     Dates: start: 20170605, end: 20170608
  2. LANDSEN [Concomitant]
     Active Substance: CLONAZEPAM
     Indication: PRODUCT USED FOR UNKNOWN INDICATION
     Route: 065
     Dates: end: 20161107
  3. L-CARTIN [Concomitant]
     Active Substance: LEVOCARNITINE HYDROCHLORIDE
     Indication: PRODUCT USED FOR UNKNOWN INDICATION
     Route: 065
  4. SABRIL [Suspect]
     Active Substance: VIGABATRIN
     Route: 048
     Dates: start: 20170412, end: 20170501
  5. DEPAKENE [Suspect]
     Active Substance: VALPROIC ACID
     Route: 048
     Dates: start: 20170728, end: 20170911
  6. DEPAKENE [Suspect]
     Active Substance: VALPROIC ACID
     Route: 048
     Dates: start: 20170912
  7. SABRIL [Suspect]
     Active Substance: VIGABATRIN
     Indication: INFANTILE SPASMS
     Route: 048
     Dates: start: 20161026, end: 20170411
  8. SABRIL [Suspect]
     Active Substance: VIGABATRIN
     Route: 048
     Dates: start: 20170502, end: 20170529
  9. SABRIL [Suspect]
     Active Substance: VIGABATRIN
     Route: 048
     Dates: start: 20170628
  10. SABRIL [Suspect]
     Active Substance: VIGABATRIN
     Route: 048
     Dates: start: 20170619, end: 20170627
  11. DEPAKENE [Suspect]
     Active Substance: VALPROIC ACID
     Route: 048
     Dates: start: 20170711, end: 20170727
  12. SABRIL [Suspect]
     Active Substance: VIGABATRIN
     Route: 048
     Dates: start: 20170530, end: 20170604
  13. SABRIL [Suspect]
     Active Substance: VIGABATRIN
     Route: 048
     Dates: start: 20170609, end: 20170618
  14. DEPAKENE [Suspect]
     Active Substance: VALPROIC ACID
     Indication: INFANTILE SPASMS
     Route: 048
     Dates: end: 20170710
  15. EXCEGRAN [Concomitant]
     Active Substance: ZONISAMIDE
     Indication: PRODUCT USED FOR UNKNOWN INDICATION
     Route: 065
     Dates: end: 20161215

REACTIONS (3)
  - Status epilepticus [Recovering/Resolving]
  - Neutrophil count decreased [Not Recovered/Not Resolved]
  - Respiratory syncytial virus infection [Recovering/Resolving]

NARRATIVE: CASE EVENT DATE: 20170417
